FAERS Safety Report 8228926-1 (Version None)
Quarter: 2012Q1

REPORT INFORMATION
  Report Type: 
  Country: None (occurrence: None)
  Receive Date: 20120322
  Receipt Date: 20120312
  Transmission Date: 20120608
  Serious: Yes (Other)
  Sender: FDA-Public Use
  Company Number: TR-JHP PHARMACEUTICALS, LLC-JHP201200163

PATIENT
  Age: 69 Year
  Sex: Female

DRUGS (2)
  1. EPINEPHRINE [Suspect]
     Indication: ANAPHYLACTIC REACTION
     Dosage: 0.5 MG, SINGLE
     Route: 058
  2. ANTIVENOM [Concomitant]
     Indication: SNAKE BITE
     Dosage: 2 VIALS
     Route: 042

REACTIONS (2)
  - TRANSIENT ISCHAEMIC ATTACK [None]
  - ATRIAL FIBRILLATION [None]
